FAERS Safety Report 4501731-5 (Version None)
Quarter: 2004Q4

REPORT INFORMATION
  Report Type: 
  Country: None (occurrence: None)
  Receive Date: 20040927
  Receipt Date: 20040819
  Transmission Date: 20050328
  Serious: Yes (Hospitalization)
  Sender: FDA-Public Use
  Company Number: USA040361307

PATIENT
  Age: 10 Year
  Sex: Female
  Weight: 43 kg

DRUGS (9)
  1. ZYPREXA [Suspect]
     Indication: AFFECTIVE DISORDER
     Dosage: 5 MG/ 1 AT BEDTIME
     Dates: start: 20021201
  2. ZYPREXA [Suspect]
     Indication: BIPOLAR DISORDER
     Dosage: 5 MG/ 1 AT BEDTIME
     Dates: start: 20021201
  3. STRATTERA [Suspect]
     Indication: ATTENTION DEFICIT/HYPERACTIVITY DISORDER
     Dosage: 40 MG/ 1 DAY
     Dates: start: 20030101
  4. DEPAKOTE [Concomitant]
  5. CELEXA [Concomitant]
  6. RITALIN [Concomitant]
  7. TRILEPTAL [Concomitant]
  8. RANITDINE [Concomitant]
  9. CLONIDINE [Concomitant]

REACTIONS (11)
  - ABDOMINAL PAIN UPPER [None]
  - AGGRESSION [None]
  - HAEMATEMESIS [None]
  - HALLUCINATION [None]
  - HALLUCINATIONS, MIXED [None]
  - HEADACHE [None]
  - HUNGER [None]
  - INTENTIONAL SELF-INJURY [None]
  - PSYCHOMOTOR HYPERACTIVITY [None]
  - SUICIDAL IDEATION [None]
  - WEIGHT INCREASED [None]
